FAERS Safety Report 13368076 (Version 1)
Quarter: 2017Q1

REPORT INFORMATION
  Report Type: Report from Study
  Country: US (occurrence: US)
  Receive Date: 20170324
  Receipt Date: 20170324
  Transmission Date: 20170429
  Serious: Yes (Hospitalization)
  Sender: FDA-Public Use
  Company Number: US-BAYER-2017-052201

PATIENT
  Age: 51 Year
  Weight: 41.18 kg

DRUGS (1)
  1. STIVARGA [Suspect]
     Active Substance: REGORAFENIB
     Indication: BLADDER CANCER
     Dosage: 160 MG, QD FOR 21 DAYS
     Route: 048
     Dates: start: 20170306

REACTIONS (2)
  - Hospitalisation [Unknown]
  - Off label use [None]

NARRATIVE: CASE EVENT DATE: 201703
